FAERS Safety Report 8805855 (Version 1)
Quarter: 2012Q4

REPORT INFORMATION
  Report Type: Spontaneous
  Country: US (occurrence: None)
  Receive Date: 20120918
  Receipt Date: 20120918
  Transmission Date: 20130627
  Serious: Yes (Other)
  Sender: FDA-Public Use
  Company Number: JPI-P-025083

PATIENT
  Age: 40 Year
  Sex: Male

DRUGS (8)
  1. XYREM [Suspect]
     Indication: NARCOLEPSY
     Dosage: 6 gm (3 gm, 2 in 1 D), oral
     Route: 048
     Dates: start: 20101223
  2. XYREM [Suspect]
     Indication: NARCOLEPSY
     Route: 048
  3. XYREM [Suspect]
     Indication: NARCOLEPSY
     Dosage: 9 gm (4.5 gm, 2 in 1 D), Oral
     Route: 048
     Dates: start: 20110207
  4. DULOXETINE HYDROCHLORIDE [Concomitant]
  5. HYDROCODONE BITARTRATE AND ACETAMINOPHEN [Concomitant]
  6. METAXALONE [Concomitant]
  7. SULINDAC [Concomitant]
  8. ROSUVASTATIN CALCIUM [Concomitant]

REACTIONS (8)
  - Hypoxia [None]
  - Insomnia [None]
  - Somnolence [None]
  - Poor quality sleep [None]
  - Rapid eye movements sleep abnormal [None]
  - Abnormal behaviour [None]
  - Sensation of heaviness [None]
  - Arthralgia [None]
